FAERS Safety Report 9910123 (Version 1)
Quarter: 2014Q1

REPORT INFORMATION
  Report Type: Spontaneous
  Country: US (occurrence: None)
  Receive Date: 20140212
  Receipt Date: 20140212
  Transmission Date: 20141002
  Serious: Yes (Death)
  Sender: FDA-Public Use
  Company Number: 2014US003006

PATIENT
  Age: 66 Year
  Sex: Male
  Weight: 74 kg

DRUGS (6)
  1. PONATINIB [Suspect]
     Indication: CHRONIC MYELOID LEUKAEMIA
     Route: 048
     Dates: start: 20131118, end: 20140117
  2. METHADONE (METHADONE HYDROCHLORIDE) [Concomitant]
  3. OXYCODONE (OXYCODONE HYDROCHLORIDE) (OXYCODONE) [Concomitant]
  4. SORBITOL (ACETIC ACID, SORBITOL) [Concomitant]
  5. HYDROCORTISONE [Concomitant]
  6. METOPROLOL (METOPROLOL TARTRATE) [Concomitant]

REACTIONS (1)
  - Sudden death [None]
